FAERS Safety Report 8255054-1 (Version None)
Quarter: 2012Q2

REPORT INFORMATION
  Report Type: 
  Country: None (occurrence: None)
  Receive Date: 20120403
  Receipt Date: 20120217
  Transmission Date: 20120825
  Serious: No
  Sender: FDA-Public Use
  Company Number: US-BAYER-2012-016960

PATIENT
  Sex: Female
  Weight: 86 kg

DRUGS (5)
  1. ASPIRIN [Suspect]
  2. MULTI-VITAMINS [Concomitant]
  3. ALEVE (CAPLET) [Suspect]
     Indication: HEADACHE
     Dosage: 2 DF, PRN
     Route: 048
     Dates: start: 20120201, end: 20120217
  4. NAPROXEN SODIUM [Concomitant]
     Dosage: 500 MG, UNK
  5. FISH OIL [Concomitant]

REACTIONS (3)
  - SNEEZING [None]
  - HEADACHE [None]
  - ABDOMINAL DISCOMFORT [None]
